FAERS Safety Report 7572232-5 (Version None)
Quarter: 2011Q2

REPORT INFORMATION
  Report Type: 
  Country: None (occurrence: None)
  Receive Date: 20110624
  Receipt Date: 20110613
  Transmission Date: 20111010
  Serious: Yes (Other)
  Sender: FDA-Public Use
  Company Number: PHHY2011US26478

PATIENT
  Sex: Female

DRUGS (21)
  1. CARISOPRODOL [Concomitant]
     Dosage: 350 MG TABLET QHS
     Route: 048
  2. CLONAZEPAM [Concomitant]
     Dosage: 0.5 MG TABLET, TID
     Route: 048
  3. DEPO-TESTOSTERONE [Concomitant]
     Dosage: 200 MG
     Route: 030
  4. EFFEXOR XR [Concomitant]
     Dosage: 75 MG SUSTAINED RELEASE 24 HR
     Route: 048
  5. GUAIFENESIN [Concomitant]
     Dosage: 3 DF, QD
     Route: 048
  6. CARVEDILOL [Concomitant]
     Dosage: 6.25 MG TABLET, 3XS DAILY BEFORE MEALS AND AT HS
     Route: 048
  7. VENLAFAXINE HYDROCHLORIDE [Concomitant]
     Dosage: 1 DF BID, ONE AT 1AM AND ONE AT 2 PM
     Route: 048
  8. CYCLOBENZAPRINE HYDROCHLORIDE [Concomitant]
     Dosage: 10 MG TABLET, TID
     Route: 048
  9. METOCLOPRAMIDE HYDROCHLORIDE [Concomitant]
     Dosage: 1 DF, TID
     Route: 048
  10. CYANOCOBALAMIN [Concomitant]
     Dosage: 1000 UG, QMO
     Route: 030
  11. DEPO-ESTRADIOL CYPIONATE [Concomitant]
     Dosage: 5 MG IVPB
  12. ZYDONE [Concomitant]
     Dosage: 7.5-400 MG, 1 PO Q6H PRN PAIN
     Route: 048
  13. MILNACIPRAN HYDROCHLORIDE [Concomitant]
     Dosage: 1 DF, QD
     Route: 048
  14. DEPO-MEDROL [Concomitant]
     Dosage: 1 MG, QMO
     Route: 030
  15. TEMAZEPAM [Concomitant]
     Dosage: 1 DF, QHS
     Route: 048
  16. TASIGNA [Suspect]
     Dosage: 2 TABS IN AM, 2 TABS IN PM
     Route: 048
     Dates: start: 20110126
  17. LYRICA [Concomitant]
     Dosage: 3 DF, BID
     Route: 048
  18. MAGIC MOUTHWASH [Concomitant]
     Dosage: 15 ML, QID PRN
     Route: 048
  19. PSEUDOCHLORPHONE [Concomitant]
     Dosage: 1 DF, QD
     Route: 048
  20. PANTOPRAZOLE SODIUM [Concomitant]
     Dosage: 1 DF, QD
     Route: 048
  21. PROVIGIL [Concomitant]
     Dosage: 0.01 DF, BID
     Route: 048

REACTIONS (4)
  - FALL [None]
  - LIMB INJURY [None]
  - DEPRESSION [None]
  - CRYING [None]
